FAERS Safety Report 12920600 (Version 1)
Quarter: 2016Q4

REPORT INFORMATION
  Report Type: Spontaneous
  Country: US (occurrence: US)
  Receive Date: 20161107
  Receipt Date: 20161107
  Transmission Date: 20170207
  Serious: No
  Sender: FDA-Public Use
  Company Number: US-PFIZER INC-2016516975

PATIENT
  Age: 56 Year
  Sex: Male
  Weight: 131.54 kg

DRUGS (1)
  1. CHANTIX [Suspect]
     Active Substance: VARENICLINE TARTRATE
     Dosage: START OFF WITH 1MG
     Dates: start: 20161015

REACTIONS (5)
  - Abnormal dreams [Unknown]
  - Condition aggravated [Unknown]
  - Drug ineffective [Unknown]
  - Irritability [Unknown]
  - Feeling abnormal [Unknown]
